FAERS Safety Report 5494737-3 (Version None)
Quarter: 2007Q4

REPORT INFORMATION
  Report Type: 
  Country: None (occurrence: None)
  Receive Date: 20071015
  Receipt Date: 20070827
  Transmission Date: 20080405
  Serious: No
  Sender: FDA-Public Use
  Company Number: 2007SP003001

PATIENT
  Age: 78 Year
  Sex: Female
  Weight: 81.6475 kg

DRUGS (9)
  1. LUNESTA [Suspect]
     Indication: INSOMNIA
     Dosage: 3 MG;HS;ORAL; 4.5 MG;HS;ORAL; 3 MG;ORAL
     Route: 048
     Dates: start: 20060101, end: 20070101
  2. LUNESTA [Suspect]
     Indication: INSOMNIA
     Dosage: 3 MG;HS;ORAL; 4.5 MG;HS;ORAL; 3 MG;ORAL
     Route: 048
     Dates: start: 20070101, end: 20070801
  3. LUNESTA [Suspect]
     Indication: INSOMNIA
     Dosage: 3 MG;HS;ORAL; 4.5 MG;HS;ORAL; 3 MG;ORAL
     Route: 048
     Dates: start: 20070801
  4. TYLENOL [Suspect]
     Dosage: 2 TAB;ORAL; 2 TAB; ORAL
     Route: 048
     Dates: end: 20070801
  5. TYLENOL [Suspect]
     Dosage: 2 TAB;ORAL; 2 TAB; ORAL
     Route: 048
     Dates: start: 20070801
  6. METFORMIN HCL [Concomitant]
  7. BISOPROLOL W/HYDROCHLOROTHIAZINE [Concomitant]
  8. DIOVAN HCT [Concomitant]
  9. AMBIEN [Concomitant]

REACTIONS (2)
  - DRUG TOLERANCE [None]
  - MIDDLE INSOMNIA [None]
